FAERS Safety Report 12497689 (Version 1)
Quarter: 2016Q2

REPORT INFORMATION
  Report Type: Spontaneous
  Country: GB (occurrence: GB)
  Receive Date: 20160625
  Receipt Date: 20160625
  Transmission Date: 20160815
  Serious: Yes (Other)
  Sender: FDA-Public Use
  Company Number: GB-ACCORD-041693

PATIENT
  Age: 86 Year
  Sex: Female
  Weight: 64 kg

DRUGS (24)
  1. BUTRANS [Concomitant]
     Active Substance: BUPRENORPHINE
     Dosage: REMOVE OLD PATCH BEFORE APPLY
     Dates: start: 20160324
  2. BETAMETHASONE. [Concomitant]
     Active Substance: BETAMETHASONE
     Dates: start: 20151214
  3. DOMPERIDONE [Concomitant]
     Active Substance: DOMPERIDONE
     Indication: NAUSEA
     Dates: start: 20160519
  4. FLUCLOXACILLIN [Concomitant]
     Active Substance: FLUCLOXACILLIN
     Dates: start: 20160513, end: 20160520
  5. LIDOCAINE. [Concomitant]
     Active Substance: LIDOCAINE
     Dosage: USE AS DIRECTED
     Dates: start: 20160324, end: 20160430
  6. MORPHINE [Concomitant]
     Active Substance: MORPHINE
     Dosage: 1 HOUR BEFORE ULCER DRESSING
     Dates: start: 20160504, end: 20160518
  7. OXYBUTYNIN [Concomitant]
     Active Substance: OXYBUTYNIN
     Dosage: AT 11PM
     Dates: start: 20151019
  8. PARACETAMOL [Concomitant]
     Active Substance: ACETAMINOPHEN
     Dosage: TAKE ONE - TWO 4 TIMES/DAY
     Dates: start: 20141218, end: 20160425
  9. SIMVASTATIN. [Concomitant]
     Active Substance: SIMVASTATIN
     Dosage: AT NIGHT
     Dates: start: 20150126
  10. ASPIRIN. [Concomitant]
     Active Substance: ASPIRIN
     Dates: start: 20141113
  11. IRON [Concomitant]
     Active Substance: IRON
     Dates: start: 20140407
  12. VAGIFEM [Concomitant]
     Active Substance: ESTRADIOL
     Dosage: EVERY NIGHT FOR TWO WEEKS THEN TWICE A WEEK
     Dates: start: 20150904, end: 20160519
  13. OMEPRAZOLE. [Concomitant]
     Active Substance: OMEPRAZOLE
     Dates: start: 20160324, end: 20160519
  14. LATANOPROST. [Concomitant]
     Active Substance: LATANOPROST
     Dosage: AT NIGHT IN BOTH  EYES
     Dates: start: 20160126
  15. ADCAL [Concomitant]
     Active Substance: CALCIUM CARBONATE
     Dates: start: 20140407
  16. COCODAMOL [Concomitant]
     Active Substance: ACETAMINOPHEN\CODEINE PHOSPHATE
     Dosage: (DO NO TAKE ANY OTHER CO-CODAMOL TABLETS WITH THIS)
     Dates: start: 20160419
  17. HYLO-FORTE [Concomitant]
     Active Substance: HYALURONATE SODIUM
     Dosage: BOTH EYES
     Dates: start: 20150806
  18. LACRI-LUBE [Concomitant]
     Dosage: AT NIGHT - BOTH EYES
     Dates: start: 20150609, end: 20160519
  19. LAXIDO [Concomitant]
     Active Substance: POLYETHYLENE GLYCOL 3350\POTASSIUM CHLORIDE\SODIUM BICARBONATE\SODIUM CHLORIDE
     Dates: start: 20150904
  20. TRAMADOL/TRAMADOL HYDROCHLORIDE [Suspect]
     Active Substance: TRAMADOL HYDROCHLORIDE
     Indication: PRODUCT USED FOR UNKNOWN INDICATION
     Dates: start: 20160531
  21. ALENDRONATE SODIUM/ALENDRONIC ACID [Concomitant]
     Active Substance: ALENDRONATE SODIUM
     Dosage: DO NOT TAKE THE ADCAL/ CALCIUM
     Dates: start: 20150615
  22. CLARITHROMYCIN/CLARITHROMYCIN LACTOBIONATE [Concomitant]
     Dates: start: 20160523, end: 20160530
  23. ESOMEPRAZOLE/ESOMEPRAZOLE MAGNESIUM/ESOMEPRAZOLE SODIUM [Concomitant]
     Dates: start: 20160519
  24. TEGADERM [Concomitant]
     Active Substance: 2-HYDROXYETHYL METHACRYLATE
     Dosage: USE AS DIRECTED
     Dates: start: 20160420, end: 20160421

REACTIONS (2)
  - Repetitive strain injury [Unknown]
  - Incorrect dose administered [None]

NARRATIVE: CASE EVENT DATE: 20160601
